FAERS Safety Report 8716092 (Version 3)
Quarter: 2012Q4

REPORT INFORMATION
  Report Type: Report from Study
  Country: DE (occurrence: DE)
  Receive Date: 20120809
  Receipt Date: 20120830
  Transmission Date: 20130627
  Serious: Yes (Death)
  Sender: FDA-Public Use
  Company Number: DE-ROCHE-1099028

PATIENT
  Age: 68 Year
  Sex: Male

DRUGS (1)
  1. RANIBIZUMAB [Suspect]
     Indication: DIABETIC RETINAL OEDEMA
     Dosage: last dose on 13/Jul/2012
     Route: 050
     Dates: start: 20120504

REACTIONS (1)
  - Cerebrovascular accident [Fatal]
